FAERS Safety Report 5421073-3 (Version None)
Quarter: 2007Q3

REPORT INFORMATION
  Report Type: 
  Country: None (occurrence: None)
  Receive Date: 20070821
  Receipt Date: 20070815
  Transmission Date: 20080115
  Serious: Yes (Other)
  Sender: FDA-Public Use
  Company Number: B0482656A

PATIENT
  Age: 31 Year
  Sex: Male
  Weight: 74 kg

DRUGS (1)
  1. AMOXICILLIN + CLAVULANATE POTASSIUM [Suspect]
     Indication: ACUTE SINUSITIS
     Dosage: 1G TWICE PER DAY
     Route: 048
     Dates: start: 20070114, end: 20070115

REACTIONS (4)
  - CONFUSIONAL STATE [None]
  - DIZZINESS [None]
  - INSOMNIA [None]
  - PANIC REACTION [None]
